FAERS Safety Report 20292279 (Version 3)
Quarter: 2022Q1

REPORT INFORMATION
  Report Type: Spontaneous
  Country: US (occurrence: US)
  Receive Date: 20220104
  Receipt Date: 20220225
  Transmission Date: 20220423
  Serious: Yes (Other)
  Sender: FDA-Public Use
  Company Number: US-PFIZER INC-202101849736

PATIENT
  Age: 68 Year
  Sex: Female
  Weight: 56.236 kg

DRUGS (3)
  1. FENTANYL CITRATE [Suspect]
     Active Substance: FENTANYL CITRATE
     Indication: Anaesthesia
     Dosage: UNK (1-2X DURING SURGERY)
     Route: 042
     Dates: start: 20141022, end: 20141022
  2. ZOFRAN [Concomitant]
     Active Substance: ONDANSETRON HYDROCHLORIDE
  3. PROPOFOL [Concomitant]
     Active Substance: PROPOFOL

REACTIONS (20)
  - Overdose [Unknown]
  - Coma [Recovered/Resolved with Sequelae]
  - Hypersensitivity vasculitis [Unknown]
  - Headache [Unknown]
  - Mood swings [Unknown]
  - Abnormal behaviour [Unknown]
  - Motor dysfunction [Unknown]
  - Movement disorder [Unknown]
  - Mutism [Unknown]
  - Eyelid function disorder [Unknown]
  - Anger [Unknown]
  - Hypersensitivity [Unknown]
  - Depressed mood [Unknown]
  - Posterior tibial tendon dysfunction [Unknown]
  - Anxiety [Unknown]
  - Decreased appetite [Unknown]
  - Overweight [Unknown]
  - Nightmare [Unknown]
  - Flashback [Unknown]
  - Post-traumatic stress disorder [Unknown]

NARRATIVE: CASE EVENT DATE: 20141022
